FAERS Safety Report 9943182 (Version 1)
Quarter: 2014Q1

REPORT INFORMATION
  Report Type: Report from Study
  Country: US (occurrence: US)
  Receive Date: 20140303
  Receipt Date: 20140303
  Transmission Date: 20141002
  Serious: Yes (Hospitalization, Other)
  Sender: FDA-Public Use
  Company Number: PHHY2014US024852

PATIENT
  Age: 71 Year
  Sex: Male

DRUGS (24)
  1. OXALIPLATIN [Suspect]
     Indication: COLORECTAL CANCER METASTATIC
     Dosage: 85 MG/M2, UNK
     Route: 042
     Dates: start: 20131015, end: 20131202
  2. OXALIPLATIN [Suspect]
     Dosage: 165 MG, UNK
     Dates: start: 20131226
  3. 5-FLUOROURACIL [Suspect]
     Indication: COLORECTAL CANCER METASTATIC
     Dosage: 3200 MG/M2, UNK
     Route: 042
     Dates: start: 20131015, end: 20131202
  4. 5-FLUOROURACIL [Suspect]
     Dosage: UNK UKN, UNK
     Dates: start: 20131226
  5. IRINOTECAN [Suspect]
     Indication: COLORECTAL CANCER METASTATIC
     Dosage: 165 MG/M2 1 IN 2 WEEK
     Route: 042
     Dates: start: 20131015, end: 20131202
  6. IRINOTECAN [Suspect]
     Dosage: UNK UKN, UNK
     Dates: start: 20131226
  7. BEVACIZUMAB [Suspect]
     Indication: COLORECTAL CANCER METASTATIC
     Dosage: 5 MG/KG, 1 IN 2 WEEK
     Route: 042
     Dates: start: 20131015, end: 20131202
  8. BEVACIZUMAB [Suspect]
     Dosage: 400 MG 1 IN 2 WEEK
     Route: 042
     Dates: start: 20131226
  9. LEUCOVORIN [Suspect]
     Indication: COLORECTAL CANCER METASTATIC
     Dosage: 780 MG 1 IN 2 WEEK
     Route: 042
     Dates: start: 20131015, end: 20131202
  10. LEUCOVORIN [Suspect]
     Dosage: UNK UKN, UNK
     Route: 042
     Dates: start: 20131226
  11. ALFUZOSIN [Concomitant]
     Indication: BENIGN PROSTATIC HYPERPLASIA
     Route: 048
  12. ATENOLOL [Concomitant]
     Indication: HYPERTENSION
     Route: 048
  13. AVODART [Concomitant]
     Indication: BENIGN PROSTATIC HYPERPLASIA
     Route: 048
  14. DEXTROAMPHETAMINE [Concomitant]
     Indication: NARCOLEPSY
     Dosage: 30 MG, UNK
     Route: 048
     Dates: start: 2006
  15. OMEPRAZOLE [Concomitant]
     Indication: GASTROOESOPHAGEAL REFLUX DISEASE
     Dosage: 40 MG, UNK
     Route: 048
     Dates: start: 2008
  16. OXYCODONE/ACETAMINOPHEN [Concomitant]
     Indication: NEOPLASM MALIGNANT
     Dosage: UNK UKN, UNK
     Dates: start: 2013
  17. TESTOSTERONE CYPIONATE [Concomitant]
     Indication: SUPPLEMENTATION THERAPY
     Dosage: 200 MG/ML, UNK
     Dates: start: 2007
  18. VYTORIN [Concomitant]
     Indication: BLOOD CHOLESTEROL INCREASED
     Dosage: 1 DF, QD
     Dates: start: 2003
  19. DHEA [Concomitant]
     Indication: SUPPLEMENTATION THERAPY
     Dosage: 50 MG, UNK
     Route: 048
     Dates: start: 2001
  20. FISH OIL [Concomitant]
     Indication: SUPPLEMENTATION THERAPY
     Dosage: 1000 MG, BID
     Dates: start: 2003
  21. L-ALANINE [Concomitant]
     Indication: SUPPLEMENTATION THERAPY
     Dosage: 2000 MG, QD
     Route: 048
     Dates: start: 2001
  22. VITAMIN B12 [Concomitant]
     Indication: SUPPLEMENTATION THERAPY
     Dosage: 1000 UG, 1 IN 3 WEEK
     Route: 030
     Dates: start: 2005
  23. VITAMIN D3 [Concomitant]
     Indication: SUPPLEMENTATION THERAPY
     Dosage: 500 U, QD
     Route: 048
     Dates: start: 2008
  24. E VITAMIN E [Concomitant]
     Indication: SUPPLEMENTATION THERAPY
     Dosage: 10000 U, QD
     Route: 048
     Dates: start: 2001

REACTIONS (13)
  - Dehydration [Recovered/Resolved]
  - Pneumonia [Not Recovered/Not Resolved]
  - Dyspnoea [Not Recovered/Not Resolved]
  - Chest pain [Not Recovered/Not Resolved]
  - Staphylococcal infection [Not Recovered/Not Resolved]
  - Pleural effusion [Not Recovered/Not Resolved]
  - Wheezing [Not Recovered/Not Resolved]
  - Productive cough [Not Recovered/Not Resolved]
  - Sputum discoloured [Not Recovered/Not Resolved]
  - Diarrhoea [Unknown]
  - Vomiting [Unknown]
  - Nausea [Unknown]
  - Blood potassium decreased [Unknown]
